FAERS Safety Report 8048762-9 (Version None)
Quarter: 2012Q1

REPORT INFORMATION
  Report Type: 
  Country: None (occurrence: None)
  Receive Date: 20120110
  Receipt Date: 20111227
  Transmission Date: 20120608
  Serious: Yes (Death, Other)
  Sender: FDA-Public Use
  Company Number: 2012MA000177

PATIENT
  Age: 77 Year
  Sex: Male

DRUGS (4)
  1. CEROPLASTIC (NO PREF. NAME) [Suspect]
     Indication: OESOPHAGEAL CARCINOMA
     Dosage: 300 MG/M2;Q4W
  2. GRANULOCYTE-COLONY STIMULATING FACTOR (NO PREF. NAME) [Suspect]
     Indication: LEUKOPENIA
  3. CISPLATIN [Suspect]
     Indication: OESOPHAGEAL CARCINOMA
     Dosage: 60 MG/M2;Q4W
  4. IRINOTECAN HYDROCHLORIDE [Suspect]
     Indication: SMALL CELL CARCINOMA
     Dosage: 60 MG/M2, DAYS 1 AND 8;Q4W

REACTIONS (6)
  - NEUTROPENIA [None]
  - OESOPHAGEAL CARCINOMA [None]
  - NEOPLASM PROGRESSION [None]
  - GENERAL PHYSICAL HEALTH DETERIORATION [None]
  - BONE CANCER METASTATIC [None]
  - DRUG EFFECT DECREASED [None]
